FAERS Safety Report 8063574-8 (Version None)
Quarter: 2012Q1

REPORT INFORMATION
  Report Type: 
  Country: None (occurrence: None)
  Receive Date: 20120123
  Receipt Date: 20120113
  Transmission Date: 20120608
  Serious: Yes (Hospitalization, Other)
  Sender: FDA-Public Use
  Company Number: US-BAYER-2012-000088

PATIENT
  Age: 31 Year
  Sex: Female
  Weight: 118 kg

DRUGS (7)
  1. BLOOD TRANSFUSION, AUXILIARY PRODUCTS [Concomitant]
  2. YASMIN [Suspect]
     Dosage: UNK
     Dates: end: 20081201
  3. BENAZEPRIL HYDROCHLORIDE [Concomitant]
     Dosage: 10 MG, UNK
     Dates: start: 20080713, end: 20090910
  4. METFORMIN HCL [Concomitant]
     Indication: DIABETES MELLITUS
  5. METOPROLOL [Concomitant]
     Dosage: 50 MG, UNK
     Dates: start: 20070524, end: 20090504
  6. CLONAZEPAM [Concomitant]
     Dosage: 0.5 MG, UNK
     Dates: start: 20080710, end: 20090126
  7. BENICAR [Concomitant]
     Indication: HYPERTENSION
     Dosage: 20 MG, QD
     Route: 048

REACTIONS (6)
  - PAIN [None]
  - DYSSTASIA [None]
  - DEEP VEIN THROMBOSIS [None]
  - INJURY [None]
  - GAIT DISTURBANCE [None]
  - THROMBOSIS [None]
